FAERS Safety Report 12531155 (Version 1)
Quarter: 2016Q3

REPORT INFORMATION
  Report Type: Spontaneous
  Country: US (occurrence: None)
  Receive Date: 20160705
  Receipt Date: 20160705
  Transmission Date: 20161109
  Serious: No
  Sender: FDA-Public Use
  Company Number: None

PATIENT
  Sex: Male
  Weight: 88 kg

DRUGS (1)
  1. ACTHAR [Suspect]
     Active Substance: CORTICOTROPIN
     Indication: POLYMYOSITIS
     Dosage: 80UNITS 2XWEEKLY SUBCUTANEOUSLY
     Route: 058
     Dates: start: 201603

REACTIONS (2)
  - Appetite disorder [None]
  - Weight abnormal [None]
